FAERS Safety Report 15761636 (Version 1)
Quarter: 2018Q4

REPORT INFORMATION
  Report Type: Spontaneous
  Country: FI (occurrence: FI)
  Receive Date: 20181226
  Receipt Date: 20181226
  Transmission Date: 20190205
  Serious: Yes (Other)
  Sender: FDA-Public Use
  Company Number: FI-GLAXOSMITHKLINE-FI2018GSK231885

PATIENT
  Age: 46 Year
  Sex: Male

DRUGS (17)
  1. CHAMPIX [Interacting]
     Active Substance: VARENICLINE TARTRATE
     Indication: NICOTINE DEPENDENCE
     Dosage: 0.5 MG, QD
     Route: 048
     Dates: start: 20070702, end: 20070704
  2. TOCLASE [Concomitant]
     Active Substance: PENTOXYVERINE
     Indication: PRODUCT USED FOR UNKNOWN INDICATION
     Dosage: UNK
     Dates: start: 20071001
  3. HAVRIX [Concomitant]
     Active Substance: HEPATITIS A VIRUS STRAIN HM175 ANTIGEN (FORMALDEHYDE INACTIVATED)
     Indication: PROPHYLAXIS
     Dates: start: 20070629, end: 20070629
  4. KLACID [Concomitant]
     Active Substance: CLARITHROMYCIN
     Indication: PRODUCT USED FOR UNKNOWN INDICATION
     Dosage: UNK
     Dates: start: 20071111, end: 200711
  5. AMOXICILLIN TRIHYDRATE [Interacting]
     Active Substance: AMOXICILLIN
     Indication: SINUSITIS
     Dosage: UNK
     Route: 048
     Dates: start: 20071105, end: 20071109
  6. NICORETTE [Suspect]
     Active Substance: NICOTINE
     Dosage: UNK PATCH
     Route: 065
     Dates: start: 2006
  7. CHAMPIX [Interacting]
     Active Substance: VARENICLINE TARTRATE
     Dosage: UNK 0.5
     Route: 048
     Dates: start: 20070705, end: 20070708
  8. DOXIMYCIN [Concomitant]
     Active Substance: DOXYCYCLINE
     Indication: PRODUCT USED FOR UNKNOWN INDICATION
     Dosage: UNK
     Dates: start: 20071001, end: 2007
  9. AMOXICILLIN TRIHYDRATE [Interacting]
     Active Substance: AMOXICILLIN
     Indication: SINUSITIS
     Dosage: UNK TABLET
     Route: 048
     Dates: start: 20071105, end: 20071109
  10. AMOXICILLIN TRIHYDRATE [Interacting]
     Active Substance: AMOXICILLIN
     Indication: INFLUENZA
  11. SERTRALINE [Suspect]
     Active Substance: SERTRALINE HYDROCHLORIDE
     Indication: PRODUCT USED FOR UNKNOWN INDICATION
     Dosage: 0.5 DF, QD
     Route: 065
     Dates: start: 200903
  12. METOCLOPRAMIDE HYDROCHLORIDE. [Suspect]
     Active Substance: METOCLOPRAMIDE HYDROCHLORIDE
     Indication: PRODUCT USED FOR UNKNOWN INDICATION
     Dosage: UNK
     Route: 065
  13. CHAMPIX [Interacting]
     Active Substance: VARENICLINE TARTRATE
     Dosage: 1 MG, BID
     Route: 065
     Dates: start: 20070709, end: 200711
  14. RINEXIN [Interacting]
     Active Substance: PHENYLPROPANOLAMINE
     Indication: PRODUCT USED FOR UNKNOWN INDICATION
     Dosage: 50 MG, UNK
     Route: 048
     Dates: start: 20071105, end: 200711
  15. AZITHROMYCIN ANHYDROUS. [Concomitant]
     Active Substance: AZITHROMYCIN ANHYDROUS
     Indication: PRODUCT USED FOR UNKNOWN INDICATION
     Dosage: UNK
     Dates: start: 20071024, end: 200710
  16. NICORETTE [Suspect]
     Active Substance: NICOTINE
     Indication: SMOKING CESSATION THERAPY
     Dosage: 2 MG, UNK GUM
     Route: 065
     Dates: start: 2006, end: 2007
  17. CIPRALEX [Suspect]
     Active Substance: ESCITALOPRAM OXALATE
     Indication: PRODUCT USED FOR UNKNOWN INDICATION
     Dosage: UNK
     Route: 065
     Dates: start: 20071218

REACTIONS (69)
  - Dyskinesia [Unknown]
  - Depression [Not Recovered/Not Resolved]
  - Increased appetite [Not Recovered/Not Resolved]
  - Sense of oppression [Unknown]
  - Memory impairment [Unknown]
  - Hypersensitivity [Unknown]
  - Restlessness [Not Recovered/Not Resolved]
  - Tremor [Unknown]
  - Snoring [Not Recovered/Not Resolved]
  - Abdominal discomfort [Recovered/Resolved]
  - Craniocerebral injury [Unknown]
  - Parkinson^s disease [Unknown]
  - Gastric disorder [Recovering/Resolving]
  - Aggression [Unknown]
  - Fear [Unknown]
  - Hypopituitarism [Unknown]
  - Weight increased [Not Recovered/Not Resolved]
  - Dizziness [Unknown]
  - Hypothyroidism [Unknown]
  - Confusional state [Unknown]
  - Cerebrovascular accident [Unknown]
  - Hallucination [Unknown]
  - Obesity [Unknown]
  - Musculoskeletal discomfort [Recovered/Resolved]
  - Upper respiratory tract infection [Unknown]
  - Anxiety [Recovering/Resolving]
  - Personality change [Unknown]
  - Irritability [Recovered/Resolved]
  - General physical health deterioration [Unknown]
  - Euphoric mood [Recovered/Resolved]
  - Blood cholesterol increased [Unknown]
  - Blood glucose increased [Unknown]
  - Neurotoxicity [Unknown]
  - Drug dependence [Unknown]
  - Nausea [Recovered/Resolved]
  - Withdrawal syndrome [Recovered/Resolved]
  - Palpitations [Recovered/Resolved]
  - Lower respiratory tract infection [Unknown]
  - Adjustment disorder with mixed anxiety and depressed mood [Unknown]
  - Hyposmia [Unknown]
  - Erectile dysfunction [Recovered/Resolved]
  - Swelling [Not Recovered/Not Resolved]
  - Acute sinusitis [Recovered/Resolved]
  - Adrenal insufficiency [Unknown]
  - Secondary hypogonadism [Unknown]
  - Dyspnoea [Recovered/Resolved]
  - Fatigue [Recovering/Resolving]
  - Loss of personal independence in daily activities [Unknown]
  - Medication error [Recovered/Resolved]
  - Vasodilatation [Recovered/Resolved]
  - Drug interaction [Recovered/Resolved]
  - Mood swings [Unknown]
  - Overweight [Unknown]
  - Olfacto genital dysplasia [Unknown]
  - Nightmare [Not Recovered/Not Resolved]
  - Tinnitus [Not Recovered/Not Resolved]
  - Erythema [Unknown]
  - Agitation [Unknown]
  - Sleep disorder [Not Recovered/Not Resolved]
  - Hyperhidrosis [Recovered/Resolved]
  - Feeling cold [Recovered/Resolved]
  - Influenza [Unknown]
  - Feeling abnormal [Unknown]
  - Infection [Recovered/Resolved]
  - Loss of libido [Not Recovered/Not Resolved]
  - Vertigo [Unknown]
  - Hepatic steatosis [Unknown]
  - Akathisia [Unknown]
  - Panic reaction [Unknown]

NARRATIVE: CASE EVENT DATE: 2006
